FAERS Safety Report 15436659 (Version 1)
Quarter: 2018Q3

REPORT INFORMATION
  Report Type: Spontaneous
  Country: US (occurrence: US)
  Receive Date: 20180927
  Receipt Date: 20180927
  Transmission Date: 20181010
  Serious: No
  Sender: FDA-Public Use
  Company Number: US-PFIZER INC-2018389490

PATIENT
  Age: 60 Year
  Sex: Female

DRUGS (1)
  1. LYRICA [Suspect]
     Active Substance: PREGABALIN
     Indication: SLEEP DISORDER
     Dosage: 600 MG, DAILY (150 MG IN THE MORNING, 200 MG IN THE AFTERNOON, 250 MG IN THE EVENING)

REACTIONS (1)
  - Drug ineffective for unapproved indication [Unknown]
